FAERS Safety Report 11517246 (Version 4)
Quarter: 2015Q4

REPORT INFORMATION
  Report Type: Report from Study
  Country: US (occurrence: US)
  Receive Date: 20150917
  Receipt Date: 20151130
  Transmission Date: 20160304
  Serious: Yes (Hospitalization)
  Sender: FDA-Public Use
  Company Number: US-PFIZER INC-2015297540

PATIENT
  Age: 19 Year
  Sex: Male
  Weight: 60.7 kg

DRUGS (15)
  1. CYCLOPHOSPHAMIDE. [Suspect]
     Active Substance: CYCLOPHOSPHAMIDE
     Dosage: 200 MG/M2, OVER 15-30 MINUTES ON DAYS 1-5 (COURSE B)
     Route: 042
  2. ETOPOSIDE. [Concomitant]
     Active Substance: ETOPOSIDE
     Dosage: 100 MG/M2, OVER 2 HOURS ON DAYS 4 AND 5 (COURSE A)
     Route: 042
  3. DOXORUBICIN HCL [Suspect]
     Active Substance: DOXORUBICIN HYDROCHLORIDE
     Indication: ANAPLASTIC LARGE-CELL LYMPHOMA
     Dosage: 25 MG/M2, OVER 1-15 MIN ON DAYS 4 AND 5 (COURSE B)
     Route: 042
     Dates: start: 20140527
  4. CRIZOTINIB [Suspect]
     Active Substance: CRIZOTINIB
     Indication: ANAPLASTIC LARGE-CELL LYMPHOMA
     Dosage: 165 MG/M2, BID ON DAYS 1-21 (COURSE A AND COURSE B)
     Route: 048
     Dates: start: 20140503
  5. DEXAMETHASONE. [Suspect]
     Active Substance: DEXAMETHASONE
     Dosage: 5 MG/M2, BID ON DAYS 3-5 (PROPHASE)
     Route: 048
  6. LEUCOVORIN /00566701/ [Suspect]
     Active Substance: LEUCOVORIN
     Indication: ANAPLASTIC LARGE CELL LYMPHOMA T- AND NULL-CELL TYPES
     Dosage: 15 MG/M2/DOSE EVERY 6 HOURS UNTIL MTX LEVEL IS LESS THAN 0.1 UM/L
     Route: 042
     Dates: start: 20140504, end: 20140826
  7. HYDROCORTISONE. [Concomitant]
     Active Substance: HYDROCORTISONE
     Dosage: 7.5-12MG ON DAY 1 (AGE BASED DOSING) (PROPHASE)
     Route: 037
  8. CYTARABINE. [Concomitant]
     Active Substance: CYTARABINE
     Dosage: 15-24MG IT ON DAY 1 (AGE BASED DOSING) (PROPHASE)
     Route: 037
  9. METHOTREXATE [Suspect]
     Active Substance: METHOTREXATE
     Dosage: 12MG ON DAY 1 (AGE BASED DOSING) (PROPHASE)
     Route: 037
     Dates: start: 20140430, end: 20140430
  10. DEXAMETHASONE. [Suspect]
     Active Substance: DEXAMETHASONE
     Indication: ANAPLASTIC LARGE CELL LYMPHOMA T- AND NULL-CELL TYPES
     Dosage: 5 MG/M2, QD ON DAYS 1-2 (PROPHASE)
     Route: 048
     Dates: start: 20140428
  11. METHOTREXATE [Suspect]
     Active Substance: METHOTREXATE
     Indication: ANAPLASTIC LARGE CELL LYMPHOMA T- AND NULL-CELL TYPES
     Dosage: 3000 MG/M2, OVER 3 HOURS ON DAY 1 (COURSE A AND COURSE B)
     Route: 042
     Dates: start: 20140503
  12. CYCLOPHOSPHAMIDE. [Suspect]
     Active Substance: CYCLOPHOSPHAMIDE
     Indication: ANAPLASTIC LARGE CELL LYMPHOMA T- AND NULL-CELL TYPES
     Dosage: 200 MG/M2, OVER 15-30 MINUTES ON DAYS 1 AND 2 (PROPHASE)
     Route: 042
     Dates: start: 20140428
  13. CYTARABINE. [Concomitant]
     Active Substance: CYTARABINE
     Dosage: 150 MG/M2, OVER 1-30 MINUTES Q12 HOURS ON DAYS 4 AND 5 (TOTAL 4 DOSES) (COURSE A)
     Route: 042
  14. DEXAMETHASONE. [Suspect]
     Active Substance: DEXAMETHASONE
     Dosage: 5 MG/M2, BID ON DAYS 1-5 (COURSE A AND COURSE B)
     Route: 048
  15. IFOSFAMIDE. [Concomitant]
     Active Substance: IFOSFAMIDE
     Dosage: 800 MG/M2, OVER 60 MIN ON DAYS 1-5 (COURSE A)
     Route: 042

REACTIONS (2)
  - Tracheal inflammation [Recovered/Resolved]
  - Stomatitis [Recovered/Resolved]

NARRATIVE: CASE EVENT DATE: 20140716
